FAERS Safety Report 4374339-2 (Version None)
Quarter: 2004Q2

REPORT INFORMATION
  Report Type: 
  Country: None (occurrence: None)
  Receive Date: 20040609
  Receipt Date: 20040510
  Transmission Date: 20050107
  Serious: Yes (Other)
  Sender: FDA-Public Use
  Company Number: PHBS2004BR06270

PATIENT
  Age: 81 Year
  Sex: Female
  Weight: 58 kg

DRUGS (5)
  1. CLORETO DE POTASSIO [Suspect]
     Indication: ELECTROLYTE SUBSTITUTION THERAPY
     Dosage: 3 DF/DAY
     Route: 048
     Dates: start: 20040506, end: 20040520
  2. ANCORON [Concomitant]
     Indication: ARRHYTHMIA
     Dosage: 2 DF/DAY
     Route: 048
  3. CAPOTEN [Concomitant]
     Indication: HYPERTENSION
     Dosage: 4 DF/DAY
     Route: 048
  4. VASCASE PLUS [Concomitant]
     Indication: HYPERTENSION
     Dosage: 2 DF/DAY
     Route: 048
  5. WARFARIN SODIUM [Concomitant]
     Dosage: 5 MG/DAY

REACTIONS (4)
  - ACTIVATED PARTIAL THROMBOPLASTIN TIME PROLONGED [None]
  - BLOOD PRESSURE INCREASED [None]
  - POLLAKIURIA [None]
  - PROTHROMBIN LEVEL DECREASED [None]
